FAERS Safety Report 5273413-6 (Version None)
Quarter: 2007Q1

REPORT INFORMATION
  Report Type: 
  Country: None (occurrence: None)
  Receive Date: 20070323
  Receipt Date: 20070312
  Transmission Date: 20070707
  Serious: Yes (Other)
  Sender: FDA-Public Use
  Company Number: PHEH2006US15319

PATIENT
  Age: 73 Year
  Sex: Male
  Weight: 75.283 kg

DRUGS (1)
  1. LOTREL [Suspect]
     Indication: HYPERTENSION
     Dosage: 5/20 MG, QD
     Route: 048
     Dates: start: 20021001

REACTIONS (2)
  - AORTIC ANEURYSM [None]
  - STENT PLACEMENT [None]
